FAERS Safety Report 8931718 (Version 1)
Quarter: 2012Q4

REPORT INFORMATION
  Report Type: 
  Country: US (occurrence: US)
  Receive Date: 20121128
  Receipt Date: 20121128
  Transmission Date: 20130627
  Serious: Yes (Life-Threatening, Hospitalization)
  Sender: FDA-Public Use
  Company Number: US-ROXANE LABORATORIES, INC.-2012-EU-05499GD

PATIENT
  Age: 49 Year
  Sex: Male

DRUGS (8)
  1. SERTRALINE [Suspect]
     Dosage: 100 mg
  2. ZOLINZA [Suspect]
     Indication: MYCOSIS FUNGOIDES
     Dosage: 400 mg
     Route: 048
  3. DOXEPIN [Suspect]
     Dosage: 25 mg
  4. HYDROCHLOROTHIAZIDE [Concomitant]
     Dosage: 25 mg
  5. NPH [Concomitant]
  6. INSULIN [Concomitant]
  7. NAPROXEN SODIUM [Concomitant]
     Indication: PAIN
  8. OXYCODONE [Concomitant]
     Indication: PAIN

REACTIONS (8)
  - Electrocardiogram QT prolonged [Unknown]
  - Torsade de pointes [Unknown]
  - Pulse absent [Recovered/Resolved]
  - Ventricular tachycardia [Recovered/Resolved]
  - Pericardial effusion [Unknown]
  - Haematemesis [Unknown]
  - Haematochezia [Unknown]
  - Syncope [Recovered/Resolved]
